FAERS Safety Report 7776122-4 (Version None)
Quarter: 2011Q3

REPORT INFORMATION
  Report Type: 
  Country: None (occurrence: None)
  Receive Date: 20110925
  Receipt Date: 20090626
  Transmission Date: 20111222
  Serious: Yes (Hospitalization, Other)
  Sender: FDA-Public Use
  Company Number: PHHY2009TW68703

PATIENT

DRUGS (1)
  1. GLEEVEC [Suspect]
     Indication: CHRONIC MYELOID LEUKAEMIA
     Dosage: 4 DF

REACTIONS (4)
  - APPENDICITIS [None]
  - GASTROOESOPHAGEAL REFLUX DISEASE [None]
  - DEPRESSION [None]
  - DRUG RESISTANCE [None]
